FAERS Safety Report 9325841 (Version 1)
Quarter: 2013Q2

REPORT INFORMATION
  Report Type: Spontaneous
  Country: US (occurrence: US)
  Receive Date: 20130604
  Receipt Date: 20130604
  Transmission Date: 20140414
  Serious: Yes (Death, Hospitalization)
  Sender: FDA-Public Use
  Company Number: US-JNJFOC-20130514845

PATIENT
  Age: 59 Year
  Sex: Male

DRUGS (8)
  1. DOXORUBICIN [Suspect]
     Indication: HEPATOSPLENIC T-CELL LYMPHOMA
     Route: 042
  2. CLADRIBINE [Suspect]
     Indication: HEPATOSPLENIC T-CELL LYMPHOMA
     Route: 065
  3. ETOPOSIDE [Suspect]
     Indication: HEPATOSPLENIC T-CELL LYMPHOMA
     Route: 065
  4. VINCRISTINE [Suspect]
     Indication: HEPATOSPLENIC T-CELL LYMPHOMA
     Route: 065
  5. CYCLOPHOSPHAMIDE [Suspect]
     Indication: HEPATOSPLENIC T-CELL LYMPHOMA
     Route: 042
  6. PREDNISONE [Suspect]
     Indication: HEPATOSPLENIC T-CELL LYMPHOMA
     Route: 042
  7. ALEMTUZUMAB [Suspect]
     Indication: HEPATOSPLENIC T-CELL LYMPHOMA
     Route: 042
  8. PENTOSTATIN [Suspect]
     Indication: HEPATOSPLENIC T-CELL LYMPHOMA
     Route: 042

REACTIONS (6)
  - Hepatic failure [Fatal]
  - Hospitalisation [Unknown]
  - Hyponatraemia [Unknown]
  - Febrile neutropenia [Unknown]
  - Pulmonary embolism [Unknown]
  - Off label use [Unknown]
